FAERS Safety Report 5340027-9 (Version None)
Quarter: 2007Q2

REPORT INFORMATION
  Report Type: 
  Country: None (occurrence: None)
  Receive Date: 20070531
  Receipt Date: 20070518
  Transmission Date: 20071010
  Serious: Yes (Hospitalization)
  Sender: FDA-Public Use
  Company Number: US-BAYER-200711208BWH

PATIENT
  Age: 92 Year
  Sex: Female

DRUGS (9)
  1. CIPROFLOXACIN [Suspect]
     Indication: ESCHERICHIA URINARY TRACT INFECTION
     Dosage: TOTAL DAILY DOSE: 500 MG  UNIT DOSE: 250 MG
     Route: 048
     Dates: start: 20070403
  2. VASOTEC [Concomitant]
  3. CLONIDINE [Concomitant]
  4. HYDROCHLOROTHIAZIDE [Concomitant]
  5. IRON [Concomitant]
  6. CALCIUM CHLORIDE [Concomitant]
  7. FERROUS FUMARATE [Concomitant]
     Dosage: TOTAL DAILY DOSE: 200 MG
     Dates: start: 20070201
  8. CALTRATE WITH VITAMIN D [Concomitant]
     Dosage: TOTAL DAILY DOSE: 600 MG
     Dates: start: 20060301, end: 20070201
  9. CALTRATE WITH VITAMIN D [Concomitant]
     Dosage: TOTAL DAILY DOSE: 1200 MG
     Dates: start: 20070201

REACTIONS (3)
  - ABDOMINAL PAIN UPPER [None]
  - INTESTINAL OBSTRUCTION [None]
  - VOMITING [None]
